FAERS Safety Report 10718073 (Version 1)
Quarter: 2015Q1

REPORT INFORMATION
  Report Type: Spontaneous
  Country: US (occurrence: US)
  Receive Date: 20150117
  Receipt Date: 20150117
  Transmission Date: 20150721
  Serious: Yes (Death)
  Sender: FDA-Public Use
  Company Number: US-JNJFOC-20150107998

PATIENT
  Age: 28 Year
  Sex: Male

DRUGS (2)
  1. DIPHENHYDRAMINE [Suspect]
     Active Substance: DIPHENHYDRAMINE
     Indication: PRODUCT USED FOR UNKNOWN INDICATION
     Dosage: PATIENT USE TO TAKE 200MG A DAY FOR WEIGHT LOSS.
     Route: 048
  2. DINITROPHENOL [Suspect]
     Active Substance: 2,4-DINITROPHENOL
     Indication: SUICIDE ATTEMPT
     Dosage: PATIENT USE TO TAKE 200MG A DAY FOR WEIGHT LOSS
     Route: 048

REACTIONS (6)
  - Cardiac arrest [Fatal]
  - Toxicity to various agents [Fatal]
  - Completed suicide [Fatal]
  - Somnolence [Fatal]
  - Hyperhidrosis [Fatal]
  - Agitation [Fatal]
